FAERS Safety Report 5122332-4 (Version None)
Quarter: 2006Q4

REPORT INFORMATION
  Report Type: 
  Country: None (occurrence: None)
  Receive Date: 20061003
  Receipt Date: 20060925
  Transmission Date: 20070319
  Serious: Yes (Hospitalization)
  Sender: FDA-Public Use
  Company Number: 226614

PATIENT
  Age: 70 Year
  Sex: Female

DRUGS (3)
  1. AVASTIN [Suspect]
     Indication: NON-SMALL CELL LUNG CANCER
     Dosage: 1248 MG, INTRAVENOUS
     Route: 042
     Dates: start: 20060605
  2. CARBOPLATIN [Suspect]
     Indication: NON-SMALL CELL LUNG CANCER
     Dosage: 608 MG, INTRAVENOUS
     Route: 042
     Dates: start: 20060605
  3. DOCETAXEL (DOCETAXEL) [Suspect]
     Indication: NON-SMALL CELL LUNG CANCER
     Dosage: 145 MG, INTRAVENOUS
     Route: 042
     Dates: start: 20060605

REACTIONS (4)
  - CELLULITIS [None]
  - EXTRAVASATION [None]
  - HAEMOGLOBIN DECREASED [None]
  - WHITE BLOOD CELL COUNT DECREASED [None]
